FAERS Safety Report 17745190 (Version 1)
Quarter: 2020Q2

REPORT INFORMATION
  Report Type: Spontaneous
  Country: US (occurrence: US)
  Receive Date: 20200504
  Receipt Date: 20200504
  Transmission Date: 20200714
  Serious: No
  Sender: FDA-Public Use
  Company Number: US-HETERO-HET2020US00481

PATIENT
  Age: 58 Year
  Sex: Female
  Weight: 58.96 kg

DRUGS (1)
  1. ENTECAVIR. [Suspect]
     Active Substance: ENTECAVIR
     Indication: HEPATITIS B
     Dosage: 0.5 MG, QD (1 PILL A DAY)
     Route: 048
     Dates: start: 20200322, end: 20200426

REACTIONS (5)
  - Swelling [Recovered/Resolved]
  - Abdominal distension [Recovered/Resolved]
  - Liver disorder [Recovered/Resolved]
  - Head discomfort [Recovered/Resolved]
  - Fatigue [Recovered/Resolved]

NARRATIVE: CASE EVENT DATE: 20200423
